FAERS Safety Report 9376576 (Version 1)
Quarter: 2013Q3

REPORT INFORMATION
  Report Type: Spontaneous
  Country: GB (occurrence: GB)
  Receive Date: 20130701
  Receipt Date: 20130701
  Transmission Date: 20140515
  Serious: Yes (Other)
  Sender: FDA-Public Use
  Company Number: GB-ABBOTT-13X-167-1109238-00

PATIENT
  Age: 68 Year
  Sex: Female

DRUGS (3)
  1. KLARICID [Suspect]
     Indication: PRODUCT USED FOR UNKNOWN INDICATION
     Route: 048
     Dates: start: 201208
  2. KLARICID [Suspect]
     Route: 048
     Dates: start: 201305
  3. PREMIQUE [Concomitant]
     Indication: HORMONE REPLACEMENT THERAPY

REACTIONS (2)
  - Uterine haemorrhage [Unknown]
  - Uterine haemorrhage [Unknown]
